FAERS Safety Report 4393503-X (Version None)
Quarter: 2004Q3

REPORT INFORMATION
  Report Type: 
  Country: None (occurrence: None)
  Receive Date: 20040706
  Receipt Date: 20040706
  Transmission Date: 20050211
  Serious: Yes (Hospitalization)
  Sender: FDA-Public Use
  Company Number: None

PATIENT
  Age: 48 Year
  Sex: Male
  Weight: 126.5 kg

DRUGS (2)
  1. ZOSYN [Suspect]
     Indication: PNEUMONIA ASPIRATION
     Dosage: 3.375 G IV Q 6 HRS
     Route: 042
     Dates: start: 20040112, end: 20040120
  2. LEVOFLOXACIN [Suspect]
     Indication: PNEUMONIA ASPIRATION
     Dosage: 500 MG IV QD
     Route: 042
     Dates: start: 20040112, end: 20040120

REACTIONS (1)
  - PYREXIA [None]
